FAERS Safety Report 12596278 (Version 1)
Quarter: 2016Q3

REPORT INFORMATION
  Report Type: Spontaneous
  Country: US (occurrence: US)
  Receive Date: 20160726
  Receipt Date: 20160726
  Transmission Date: 20161109
  Serious: Yes (Hospitalization)
  Sender: FDA-Public Use
  Company Number: US-AMGEN-USASP2016090121

PATIENT
  Age: 64 Year
  Sex: Male

DRUGS (5)
  1. KYPROLIS [Suspect]
     Active Substance: CARFILZOMIB
     Indication: PLASMA CELL MYELOMA
     Dosage: UNK
     Route: 065
     Dates: start: 201602
  2. DEXAMETHASONE. [Concomitant]
     Active Substance: DEXAMETHASONE
     Indication: DISEASE PROGRESSION
     Dosage: UNK
     Dates: start: 201602
  3. REVLIMID [Concomitant]
     Active Substance: LENALIDOMIDE
     Dosage: UNK
     Dates: start: 201602
  4. CYCLOPHOSPHAMIDE. [Concomitant]
     Active Substance: CYCLOPHOSPHAMIDE
     Indication: DISEASE PROGRESSION
     Dosage: UNK
     Dates: start: 2016
  5. KYPROLIS [Suspect]
     Active Substance: CARFILZOMIB
     Dosage: UNK, DAY 1 AND 2.
     Route: 065
     Dates: start: 2016

REACTIONS (2)
  - Off label use [Unknown]
  - Disease progression [Unknown]

NARRATIVE: CASE EVENT DATE: 2016
